FAERS Safety Report 24969354 (Version 2)
Quarter: 2025Q1

REPORT INFORMATION
  Report Type: Spontaneous
  Country: US (occurrence: US)
  Receive Date: 20250214
  Receipt Date: 20250314
  Transmission Date: 20250409
  Serious: No
  Sender: AMGEN
  Company Number: US-AMGEN-USASP2025027704

PATIENT
  Sex: Female

DRUGS (12)
  1. OTEZLA [Suspect]
     Active Substance: APREMILAST
     Indication: Psoriatic arthropathy
     Dosage: 30 MILLIGRAM, BID
     Route: 048
  2. PREDNISONE [Suspect]
     Active Substance: PREDNISONE
     Indication: Product used for unknown indication
     Route: 065
  3. Citracal + D3 [Concomitant]
  4. CLOBETASOL [Concomitant]
     Active Substance: CLOBETASOL
  5. DILTIAZEM [Concomitant]
     Active Substance: DILTIAZEM
  6. ELIQUIS [Concomitant]
     Active Substance: APIXABAN
  7. FLUOXETINE [Concomitant]
     Active Substance: FLUOXETINE HYDROCHLORIDE
  8. HUMIRA [Concomitant]
     Active Substance: ADALIMUMAB
  9. LEFLUNOMIDE [Concomitant]
     Active Substance: LEFLUNOMIDE
  10. LEVOTHYROXINE [Concomitant]
     Active Substance: LEVOTHYROXINE
  11. PREGABALIN [Concomitant]
     Active Substance: PREGABALIN
  12. VITAMIN C [Concomitant]
     Active Substance: ASCORBIC ACID

REACTIONS (4)
  - Loss of personal independence in daily activities [Unknown]
  - Pain [Unknown]
  - Therapy non-responder [Unknown]
  - Product dose omission issue [Unknown]
